FAERS Safety Report 5772984-0 (Version None)
Quarter: 2008Q2

REPORT INFORMATION
  Report Type: 
  Country: None (occurrence: None)
  Receive Date: 20080613
  Receipt Date: 20080604
  Transmission Date: 20081010
  Serious: Yes (Other)
  Sender: FDA-Public Use
  Company Number: US-PFIZER INC-2008047757

PATIENT
  Sex: Male
  Weight: 93 kg

DRUGS (1)
  1. CHANTIX [Suspect]
     Indication: SMOKING CESSATION THERAPY
     Route: 048
     Dates: start: 20070801, end: 20080201

REACTIONS (3)
  - OCULAR VASCULAR DISORDER [None]
  - RETINAL OEDEMA [None]
  - VISUAL DISTURBANCE [None]
